FAERS Safety Report 25120695 (Version 1)
Quarter: 2025Q1

REPORT INFORMATION
  Report Type: Spontaneous
  Country: CA (occurrence: CA)
  Receive Date: 20250325
  Receipt Date: 20250325
  Transmission Date: 20250409
  Serious: Yes (Death, Life-Threatening, Hospitalization, Disabling, Other)
  Sender: NOVARTIS
  Company Number: CA-002147023-NVSC2025CA049081

PATIENT
  Age: 44 Year
  Sex: Female
  Weight: 97 kg

DRUGS (33)
  1. ADALIMUMAB [Suspect]
     Active Substance: ADALIMUMAB
     Indication: Psoriatic arthropathy
     Route: 048
  2. ADALIMUMAB [Suspect]
     Active Substance: ADALIMUMAB
     Route: 058
  3. ADALIMUMAB [Suspect]
     Active Substance: ADALIMUMAB
     Route: 058
  4. ADALIMUMAB [Suspect]
     Active Substance: ADALIMUMAB
     Route: 058
  5. OXYCODONE [Suspect]
     Active Substance: OXYCODONE
     Indication: Product used for unknown indication
     Route: 065
  6. DOXYCYCLINE [Suspect]
     Active Substance: DOXYCYCLINE
     Indication: Product used for unknown indication
     Route: 065
  7. PREGABALIN [Suspect]
     Active Substance: PREGABALIN
     Indication: Product used for unknown indication
     Route: 065
  8. COSENTYX [Suspect]
     Active Substance: SECUKINUMAB
     Indication: Rheumatoid arthritis
     Route: 005
  9. COSENTYX [Suspect]
     Active Substance: SECUKINUMAB
     Indication: Psoriatic arthropathy
  10. ERELZI [Suspect]
     Active Substance: ETANERCEPT-SZZS
     Indication: Rheumatoid arthritis
     Dosage: 50 MG, QW
     Route: 058
  11. ERELZI [Suspect]
     Active Substance: ETANERCEPT-SZZS
     Route: 058
  12. CELECOXIB [Suspect]
     Active Substance: CELECOXIB
     Indication: Product used for unknown indication
     Dosage: 1 DOSAGE FORM, QD
     Route: 065
  13. CELECOXIB [Suspect]
     Active Substance: CELECOXIB
     Route: 065
  14. CELECOXIB [Suspect]
     Active Substance: CELECOXIB
     Route: 065
  15. CELECOXIB [Suspect]
     Active Substance: CELECOXIB
     Route: 065
  16. PANTOPRAZOLE [Suspect]
     Active Substance: PANTOPRAZOLE
     Indication: Product used for unknown indication
     Route: 016
  17. PANTOPRAZOLE [Suspect]
     Active Substance: PANTOPRAZOLE
     Route: 065
  18. PANTOPRAZOLE [Suspect]
     Active Substance: PANTOPRAZOLE
     Route: 065
  19. MYCOPHENOLATE MOFETIL [Suspect]
     Active Substance: MYCOPHENOLATE MOFETIL
     Indication: Rheumatoid arthritis
     Route: 065
  20. ISOPROPYL ALCOHOL [Suspect]
     Active Substance: ISOPROPYL ALCOHOL
     Indication: Product used for unknown indication
     Route: 065
  21. ISOPROPYL ALCOHOL [Suspect]
     Active Substance: ISOPROPYL ALCOHOL
     Route: 065
  22. PERIOGARD [Suspect]
     Active Substance: CHLORHEXIDINE GLUCONATE
     Indication: Product used for unknown indication
     Route: 002
  23. PERIOGARD [Suspect]
     Active Substance: CHLORHEXIDINE GLUCONATE
     Route: 048
  24. PERIOGARD [Suspect]
     Active Substance: CHLORHEXIDINE GLUCONATE
     Route: 016
  25. PERIOGARD [Suspect]
     Active Substance: CHLORHEXIDINE GLUCONATE
     Route: 016
  26. CETIRIZINE HYDROCHLORIDE [Suspect]
     Active Substance: CETIRIZINE HYDROCHLORIDE
     Indication: Rheumatoid arthritis
     Route: 048
  27. CETIRIZINE HYDROCHLORIDE [Suspect]
     Active Substance: CETIRIZINE HYDROCHLORIDE
     Route: 065
  28. CETIRIZINE HYDROCHLORIDE [Suspect]
     Active Substance: CETIRIZINE HYDROCHLORIDE
     Route: 065
  29. LYRICA [Suspect]
     Active Substance: PREGABALIN
     Indication: Product used for unknown indication
     Route: 065
  30. FLUMETHASONE PIVALATE [Suspect]
     Active Substance: FLUMETHASONE PIVALATE
     Indication: Rheumatoid arthritis
     Route: 065
  31. NEOMYCIN [Suspect]
     Active Substance: NEOMYCIN
     Indication: Product used for unknown indication
     Route: 065
  32. HYDROCORTISONE [Suspect]
     Active Substance: HYDROCORTISONE
     Indication: Rheumatoid arthritis
     Route: 048
  33. HYDROCORTISONE [Suspect]
     Active Substance: HYDROCORTISONE
     Route: 048

REACTIONS (30)
  - Malaise [Fatal]
  - Lung disorder [Fatal]
  - Ill-defined disorder [Fatal]
  - Adjustment disorder with depressed mood [Fatal]
  - Alopecia [Fatal]
  - Amnesia [Fatal]
  - Breast cancer stage III [Fatal]
  - Colitis ulcerative [Fatal]
  - Deep vein thrombosis [Fatal]
  - Delirium [Fatal]
  - Dislocation of vertebra [Fatal]
  - Depression [Fatal]
  - Dizziness [Fatal]
  - Dyspnoea [Fatal]
  - Feeling hot [Fatal]
  - Medication error [Fatal]
  - Obesity [Fatal]
  - Paraesthesia [Fatal]
  - Peripheral venous disease [Fatal]
  - Porphyria acute [Fatal]
  - Prescribed overdose [Fatal]
  - Sleep disorder due to general medical condition, insomnia type [Fatal]
  - Stomatitis [Fatal]
  - Systemic lupus erythematosus [Fatal]
  - Treatment failure [Fatal]
  - Type 2 diabetes mellitus [Fatal]
  - Upper respiratory tract infection [Fatal]
  - Weight fluctuation [Fatal]
  - Wound infection [Fatal]
  - Off label use [Fatal]
